FAERS Safety Report 15368848 (Version 1)
Quarter: 2018Q4

REPORT INFORMATION
  Report Type: Spontaneous
  Country: JP (occurrence: JP)
  Receive Date: 20180911
  Receipt Date: 20180911
  Transmission Date: 20190204
  Serious: Yes (Death, Other)
  Sender: FDA-Public Use
  Company Number: JP-ACCORD-071475

PATIENT
  Age: 44 Year
  Sex: Male
  Weight: 28.7 kg

DRUGS (5)
  1. MELPHALAN. [Suspect]
     Active Substance: MELPHALAN
  2. BUSULFAN. [Suspect]
     Active Substance: BUSULFAN
     Route: 042
  3. TACROLIMUS. [Suspect]
     Active Substance: TACROLIMUS
     Indication: PROPHYLAXIS
  4. IMMUNOGLOBULINE [Suspect]
     Active Substance: HUMAN IMMUNOGLOBULIN G
  5. FLUDARABINE [Suspect]
     Active Substance: FLUDARABINE PHOSPHATE

REACTIONS (4)
  - Graft versus host disease [Unknown]
  - Pulmonary haemorrhage [Unknown]
  - Pneumonia [Fatal]
  - Bacteraemia [Unknown]
